APPROVED DRUG PRODUCT: CLOTRIMAZOLE AND BETAMETHASONE DIPROPIONATE
Active Ingredient: BETAMETHASONE DIPROPIONATE; CLOTRIMAZOLE
Strength: EQ 0.05% BASE;1%
Dosage Form/Route: CREAM;TOPICAL
Application: A076002 | Product #001 | TE Code: AB
Applicant: ACTAVIS MID ATLANTIC LLC
Approved: Aug 2, 2002 | RLD: No | RS: No | Type: RX